FAERS Safety Report 9396288 (Version 1)
Quarter: 2013Q3

REPORT INFORMATION
  Report Type: Spontaneous
  Country: FR (occurrence: FR)
  Receive Date: 20130701
  Receipt Date: 20130701
  Transmission Date: 20140515
  Serious: Yes (Hospitalization)
  Sender: FDA-Public Use
  Company Number: 2013036664

PATIENT
  Age: 25 Year
  Sex: Female

DRUGS (1)
  1. PRIVIGEN [Suspect]
     Indication: PROPHYLAXIS
     Route: 042
     Dates: start: 20130409

REACTIONS (7)
  - Headache [None]
  - Vomiting [None]
  - Diarrhoea [None]
  - Nausea [None]
  - Photophobia [None]
  - Fatigue [None]
  - Maternal exposure during pregnancy [None]
